FAERS Safety Report 14230681 (Version 1)
Quarter: 2017Q4

REPORT INFORMATION
  Report Type: Spontaneous
  Country: GB (occurrence: GB)
  Receive Date: 20171128
  Receipt Date: 20171128
  Transmission Date: 20180321
  Serious: Yes (Other)
  Sender: FDA-Public Use
  Company Number: GB-TEVA-152991ISR

PATIENT
  Sex: Male

DRUGS (7)
  1. IBUPROFEN. [Suspect]
     Active Substance: IBUPROFEN
     Route: 065
     Dates: start: 20020820
  2. LOFEPRAMINE [Suspect]
     Active Substance: LOFEPRAMINE
     Route: 065
  3. CODEINE [Suspect]
     Active Substance: CODEINE
     Route: 065
  4. ALCOHOL. [Suspect]
     Active Substance: ALCOHOL
     Route: 065
  5. PAROXETINE. [Suspect]
     Active Substance: PAROXETINE
     Indication: PHOBIA
     Route: 065
     Dates: start: 19990901, end: 20021201
  6. ACETYLSALICYLIC ACID [Suspect]
     Active Substance: ASPIRIN
     Route: 065
  7. NUROFEN [Suspect]
     Active Substance: IBUPROFEN
     Route: 065
     Dates: start: 20020820

REACTIONS (11)
  - Social anxiety disorder [Unknown]
  - Overdose [Unknown]
  - Depression [Unknown]
  - Suicide attempt [Unknown]
  - Drug withdrawal syndrome [Unknown]
  - Vision blurred [Unknown]
  - Dry mouth [Unknown]
  - Sexual dysfunction [Unknown]
  - Suicidal ideation [Unknown]
  - Constipation [Unknown]
  - Aggression [Unknown]

NARRATIVE: CASE EVENT DATE: 200104
